FAERS Safety Report 7565585-5 (Version None)
Quarter: 2011Q2

REPORT INFORMATION
  Report Type: 
  Country: None (occurrence: None)
  Receive Date: 20110615
  Receipt Date: 20110602
  Transmission Date: 20111010
  Serious: Yes (Hospitalization)
  Sender: FDA-Public Use
  Company Number: 2011SP027078

PATIENT

DRUGS (2)
  1. IMPLANON [Suspect]
     Indication: DRUG EXPOSURE DURING PREGNANCY
     Dosage: ;TRPL
     Route: 064
  2. PHENOBARBITAL TAB [Suspect]
     Indication: DRUG EXPOSURE DURING PREGNANCY
     Dosage: ;TRPL
     Route: 064
     Dates: start: 20040101, end: 20041101

REACTIONS (3)
  - MATERNAL DRUGS AFFECTING FOETUS [None]
  - CONGENITAL PNEUMONIA [None]
  - CONGENITAL PULMONARY HYPERTENSION [None]
